FAERS Safety Report 6100008-4 (Version None)
Quarter: 2009Q1

REPORT INFORMATION
  Report Type: 
  Country: None (occurrence: None)
  Receive Date: 20090303
  Receipt Date: 20090227
  Transmission Date: 20090719
  Serious: Yes (Death)
  Sender: FDA-Public Use
  Company Number: A0770979A

PATIENT
  Age: 90 Year
  Sex: Male
  Weight: 50 kg

DRUGS (7)
  1. SERETIDE [Suspect]
     Indication: ASTHMA
     Dosage: 2PUFF TWICE PER DAY
     Route: 055
     Dates: start: 20080501, end: 20090130
  2. GARDENAL [Concomitant]
     Dosage: 100MG PER DAY
     Dates: start: 20090101, end: 20090130
  3. CITALOPRAM [Concomitant]
     Dosage: 20MG PER DAY
     Dates: start: 20080301, end: 20090130
  4. DAFLON [Concomitant]
     Dosage: 500MG PER DAY
     Dates: start: 20070101, end: 20090130
  5. CILOSTAZOL [Concomitant]
     Dosage: 500MG TWICE PER DAY
     Dates: start: 20070101, end: 20090130
  6. COUMADIN [Concomitant]
     Dosage: 1MG TWICE PER DAY
     Dates: start: 20070101, end: 20090130
  7. OMEPRAZOLE [Concomitant]
     Dosage: 40MG PER DAY
     Dates: start: 20080601, end: 20090130

REACTIONS (1)
  - GASTROINTESTINAL HAEMORRHAGE [None]
